FAERS Safety Report 6759999-0 (Version None)
Quarter: 2010Q2

REPORT INFORMATION
  Report Type: 
  Country: None (occurrence: None)
  Receive Date: 20100608
  Receipt Date: 20100528
  Transmission Date: 20101027
  Serious: Yes (Hospitalization)
  Sender: FDA-Public Use
  Company Number: BE-ELI_LILLY_AND_COMPANY-BE201006000032

PATIENT
  Sex: Male
  Weight: 77 kg

DRUGS (16)
  1. PEMETREXED [Suspect]
     Indication: NON-SMALL CELL LUNG CANCER
     Dosage: 500 MG/M2, DAY 1 EVERY 21 DAYS
     Route: 042
     Dates: start: 20100303
  2. CISPLATIN [Suspect]
     Indication: NON-SMALL CELL LUNG CANCER
     Dosage: 75 MG/M2, DAY 1 EVERY 21 DAYS
     Route: 042
     Dates: start: 20100303
  3. FOLIC ACID [Concomitant]
     Indication: PROPHYLAXIS
     Dosage: UNK, UNK
     Dates: start: 20100226
  4. VITAMIN B-12 [Concomitant]
     Indication: PROPHYLAXIS
     Dates: start: 20100225
  5. DEXAMETHASONE                      /00016002/ [Concomitant]
     Indication: PROPHYLAXIS
     Dates: start: 20100302
  6. ZOMETA [Concomitant]
     Indication: METASTASES TO BONE
     Dates: start: 20100304
  7. PAROXETINE HCL [Concomitant]
     Indication: DEPRESSION
     Dates: start: 20100304
  8. COVERSYL [Concomitant]
     Indication: HYPERTENSION
     Dates: start: 20100901
  9. SINGULAIR                               /SCH/ [Concomitant]
     Indication: ASTHMA
     Dates: start: 20060630
  10. CRESTOR [Concomitant]
     Indication: HYPERCHOLESTEROLAEMIA
     Dates: start: 20090701
  11. NOCTAMID [Concomitant]
     Indication: INSOMNIA
     Dates: start: 20030101
  12. CETIRIZINE HCL [Concomitant]
     Indication: RHINITIS ALLERGIC
     Dates: start: 20050101
  13. CALCIUM CARBONATE [Concomitant]
     Indication: METASTASES TO BONE
     Dates: start: 20100211
  14. DUOVENT [Concomitant]
     Indication: ASTHMA
     Dates: start: 20100211
  15. SPIRIVA [Concomitant]
     Indication: ASTHMA
     Dates: start: 20100211
  16. SERETIDE [Concomitant]
     Indication: ASTHMA
     Dates: start: 20060101

REACTIONS (1)
  - LUNG DISORDER [None]
